FAERS Safety Report 5937010-9 (Version None)
Quarter: 2008Q4

REPORT INFORMATION
  Report Type: 
  Country: None (occurrence: None)
  Receive Date: 20081031
  Receipt Date: 20080930
  Transmission Date: 20090506
  Serious: No
  Sender: FDA-Public Use
  Company Number: US-BAYER-200835111NA

PATIENT
  Sex: Female

DRUGS (1)
  1. ANGELIQ [Suspect]
     Indication: MENOPAUSE
     Route: 048
     Dates: start: 20080101

REACTIONS (2)
  - GENITAL HAEMORRHAGE [None]
  - METRORRHAGIA [None]
